FAERS Safety Report 4383950-4 (Version None)
Quarter: 2004Q2

REPORT INFORMATION
  Report Type: 
  Country: None (occurrence: None)
  Receive Date: 20040624
  Receipt Date: 20040603
  Transmission Date: 20050107
  Serious: Yes (Other)
  Sender: FDA-Public Use
  Company Number: PHRM2004FR02012

PATIENT
  Sex: Female

DRUGS (6)
  1. NITRIDERM TTS [Suspect]
     Dosage: 5 MG, QD
     Route: 062
     Dates: start: 20031103
  2. ADANCOR [Concomitant]
     Dosage: 20 MG/DAY
     Route: 048
  3. KARDEGIC [Concomitant]
     Dosage: 75 MG, QD
     Route: 048
  4. BISOPROLOL FUMARATE [Concomitant]
     Dosage: 10 MG, QD
     Route: 048
  5. SIMVASTATIN [Concomitant]
     Dosage: 20 MG, QD
     Route: 048
  6. DI-ANTALVIC [Concomitant]
     Dosage: UNK, UNK
     Route: 048

REACTIONS (2)
  - FEELING ABNORMAL [None]
  - MALAISE [None]
